FAERS Safety Report 9491434 (Version 2)
Quarter: 2013Q1

REPORT INFORMATION
  Report Type: Not Available
  Country: US (occurrence: US)
  Receive Date: 20120619
  Receipt Date: 20120619
  Transmission Date: 20140127
  Serious: Yes (Other)
  Sender: FDA-Public Use
  Company Number: US-LUNDBECK-DKLU1075541

PATIENT
  Age: 31 None
  Sex: Male

DRUGS (11)
  1. CLOBAZAM [Suspect]
     Indication: LENNOX-GASTAUT SYNDROME
     Route: 048
     Dates: start: 20080718
  2. CLOBAZAM [Suspect]
     Route: 048
     Dates: start: 20110115
  3. PRILOSEC [Concomitant]
     Indication: GASTROENTERITIS
     Route: 048
     Dates: start: 20101115
  4. DULCOLAX [Concomitant]
     Indication: CONSTIPATION
     Route: 048
     Dates: start: 20101114
  5. ZOFRAN [Concomitant]
     Indication: NAUSEA
     Route: 048
     Dates: start: 201006
  6. ZOFRAN [Concomitant]
     Indication: VOMITING
  7. ALPRAZOLAM [Concomitant]
     Indication: ANXIETY
     Route: 048
     Dates: start: 20091112
  8. FELBAMATE [Concomitant]
     Indication: EPILEPSY
     Route: 048
     Dates: start: 200709
  9. DEPAKOTE SPRINKLES [Concomitant]
     Indication: EPILEPSY
     Route: 048
     Dates: start: 20101015
  10. DEPAKOTE SPRINKLES [Concomitant]
     Route: 048
     Dates: start: 20101015
  11. LAMOTRIGINE [Concomitant]
     Indication: EPILEPSY
     Route: 048
     Dates: start: 20050425

REACTIONS (1)
  - Laceration [Recovered/Resolved]
